FAERS Safety Report 19439303 (Version 1)
Quarter: 2021Q2

REPORT INFORMATION
  Report Type: Spontaneous
  Country: US (occurrence: US)
  Receive Date: 20210618
  Receipt Date: 20210618
  Transmission Date: 20210717
  Serious: Yes (Disabling)
  Sender: FDA-Public Use
  Company Number: US-PFIZER INC-2021574944

PATIENT
  Age: 69 Year
  Sex: Female
  Weight: 67.6 kg

DRUGS (8)
  1. ATENOLOL HCL [Concomitant]
     Indication: BLOOD PRESSURE MEASUREMENT
  2. CLONAZEPAM. [Concomitant]
     Active Substance: CLONAZEPAM
     Dosage: 0.5 MG, 2X/DAY
  3. LEVOTHYROXINE. [Concomitant]
     Active Substance: LEVOTHYROXINE
     Indication: THYROIDITIS
     Dosage: UNK
     Dates: start: 1990
  4. OMEPRAZOLE. [Concomitant]
     Active Substance: OMEPRAZOLE
     Indication: GASTROOESOPHAGEAL REFLUX DISEASE
  5. VENLAFAXINE HCL [Suspect]
     Active Substance: VENLAFAXINE HYDROCHLORIDE
     Indication: PANIC DISORDER
  6. VENLAFAXINE HCL [Suspect]
     Active Substance: VENLAFAXINE HYDROCHLORIDE
     Indication: ANXIETY
  7. VENLAFAXINE HCL [Suspect]
     Active Substance: VENLAFAXINE HYDROCHLORIDE
     Indication: DEPRESSION
  8. BUTALBITAL, ACETAMINOPHEN, AND CAFFEINE [Concomitant]
     Active Substance: ACETAMINOPHEN\BUTALBITAL\CAFFEINE
     Indication: HEADACHE

REACTIONS (12)
  - Headache [Unknown]
  - Drug ineffective [Unknown]
  - Nervousness [Unknown]
  - Diarrhoea [Unknown]
  - Illness [Unknown]
  - Gastrointestinal disorder [Unknown]
  - Agoraphobia [Unknown]
  - Dizziness [Unknown]
  - Loss of personal independence in daily activities [Unknown]
  - Nausea [Unknown]
  - Malaise [Unknown]
  - Insomnia [Unknown]
